FAERS Safety Report 22047147 (Version 1)
Quarter: 2023Q1

REPORT INFORMATION
  Report Type: Other
  Country: US (occurrence: None)
  Receive Date: 20230301
  Receipt Date: 20230301
  Transmission Date: 20230418
  Serious: Yes (Hospitalization)
  Sender: FDA-Public Use
  Company Number: US-ROCHE-3291787

PATIENT
  Age: 42 Year
  Sex: Male
  Weight: 90.800 kg

DRUGS (7)
  1. OCREVUS [Suspect]
     Active Substance: OCRELIZUMAB
     Indication: Relapsing multiple sclerosis
     Dosage: DATE OF TREATMENT:01/JUL/2022,06/JAN/2023
     Route: 042
     Dates: start: 202009
  2. VENLAFAXINE [Concomitant]
     Active Substance: VENLAFAXINE HYDROCHLORIDE
  3. TOPAMAX [Concomitant]
     Active Substance: TOPIRAMATE
  4. TRAZODONE [Concomitant]
     Active Substance: TRAZODONE HYDROCHLORIDE
  5. CLARITIN [Concomitant]
     Active Substance: LORATADINE
  6. TESTOSTERONE CYPIONATE [Concomitant]
     Active Substance: TESTOSTERONE CYPIONATE
  7. TYSABRI [Concomitant]
     Active Substance: NATALIZUMAB

REACTIONS (2)
  - Urinary tract infection [Recovering/Resolving]
  - Stress [Not Recovered/Not Resolved]

NARRATIVE: CASE EVENT DATE: 20230101
